FAERS Safety Report 6735953-X (Version None)
Quarter: 2010Q2

REPORT INFORMATION
  Report Type: 
  Country: None (occurrence: None)
  Receive Date: 20100521
  Receipt Date: 20100517
  Transmission Date: 20101027
  Serious: Yes (Hospitalization)
  Sender: FDA-Public Use
  Company Number: B0653179A

PATIENT
  Sex: Male

DRUGS (6)
  1. AUGMENTIN '125' [Suspect]
     Dosage: 1G PER DAY
     Route: 042
     Dates: start: 20091130, end: 20091130
  2. DEROXAT [Suspect]
     Indication: MAJOR DEPRESSION
     Dosage: 20MG PER DAY
     Route: 048
     Dates: start: 20091107, end: 20091207
  3. AMOXICILLIN [Suspect]
     Dosage: 2G PER DAY
     Route: 048
     Dates: start: 20091127, end: 20091130
  4. HALDOL [Suspect]
     Indication: DRUG USE FOR UNKNOWN INDICATION
     Dosage: 2.5MG PER DAY
     Route: 065
     Dates: start: 20091119, end: 20091130
  5. SERESTA [Suspect]
     Indication: MAJOR DEPRESSION
     Dosage: 200MG PER DAY
     Route: 048
     Dates: start: 20091109, end: 20091130
  6. TERCIAN [Suspect]
     Indication: DRUG USE FOR UNKNOWN INDICATION
     Dosage: 300MG PER DAY
     Route: 065
     Dates: start: 20091119, end: 20091130

REACTIONS (2)
  - AGRANULOCYTOSIS [None]
  - PYREXIA [None]
